FAERS Safety Report 8546820-3 (Version None)
Quarter: 2012Q3

REPORT INFORMATION
  Report Type: 
  Country: None (occurrence: None)
  Receive Date: 20120727
  Receipt Date: 20120209
  Transmission Date: 20120928
  Serious: No
  Sender: FDA-Public Use
  Company Number: US-ASTRAZENECA-2012SE08978

PATIENT
  Age: 30 Year
  Sex: Female
  Weight: 49.9 kg

DRUGS (2)
  1. SEROQUEL [Suspect]
     Indication: BIPOLAR I DISORDER
     Route: 048
     Dates: start: 20110101, end: 20110101
  2. SEROQUEL [Suspect]
     Dosage: 50 MG AND 100 MG
     Route: 048
     Dates: start: 20110101

REACTIONS (3)
  - ABNORMAL BEHAVIOUR [None]
  - DRUG INEFFECTIVE [None]
  - DRUG DOSE OMISSION [None]
